FAERS Safety Report 6907111-7 (Version None)
Quarter: 2010Q3

REPORT INFORMATION
  Report Type: 
  Country: None (occurrence: None)
  Receive Date: 20100804
  Receipt Date: 20090126
  Transmission Date: 20110219
  Serious: No
  Sender: FDA-Public Use
  Company Number: US-PFIZER INC-2009161073

PATIENT
  Sex: Male
  Weight: 72.574 kg

DRUGS (2)
  1. NARDIL [Suspect]
     Indication: DEPRESSION
     Dosage: 30 MG, 2X/DAY
  2. NARDIL [Suspect]
     Indication: ANXIETY

REACTIONS (5)
  - ANXIETY [None]
  - DEPRESSION [None]
  - HEPATIC ENZYME INCREASED [None]
  - IRRITABILITY [None]
  - WEIGHT INCREASED [None]
